FAERS Safety Report 5751260-6 (Version None)
Quarter: 2008Q2

REPORT INFORMATION
  Report Type: 
  Country: None (occurrence: None)
  Receive Date: 20080528
  Receipt Date: 20080516
  Transmission Date: 20081010
  Serious: Yes (Other)
  Sender: FDA-Public Use
  Company Number: CA-PFIZER INC-2008034370

PATIENT
  Sex: Female
  Weight: 52.2 kg

DRUGS (2)
  1. CHANTIX [Suspect]
     Indication: SMOKING CESSATION THERAPY
     Route: 048
     Dates: start: 20080301, end: 20080321
  2. TEMAZEPAM [Concomitant]
     Indication: SLEEP DISORDER

REACTIONS (3)
  - CHEST PAIN [None]
  - PALPITATIONS [None]
  - THROAT TIGHTNESS [None]
